FAERS Safety Report 6617373-1 (Version None)
Quarter: 2010Q1

REPORT INFORMATION
  Report Type: 
  Country: None (occurrence: None)
  Receive Date: 20100307
  Receipt Date: 20100225
  Transmission Date: 20100710
  Serious: Yes (Life-Threatening, Hospitalization, Other)
  Sender: FDA-Public Use
  Company Number: US-BAYER-201011389BCC

PATIENT
  Age: 44 Year
  Sex: Male
  Weight: 98 kg

DRUGS (4)
  1. PHILLIPS' MILK OF MAGNESIA CHERRY [Suspect]
     Indication: ABDOMINAL DISCOMFORT
     Route: 048
     Dates: start: 20100130, end: 20100205
  2. IMODIUM [Concomitant]
     Indication: ABDOMINAL DISCOMFORT
     Route: 065
  3. FLAGYL [Concomitant]
     Route: 065
     Dates: start: 20100213
  4. CIPRO [Concomitant]
     Route: 065
     Dates: start: 20100213

REACTIONS (7)
  - ABDOMINAL PAIN UPPER [None]
  - COLITIS [None]
  - DIARRHOEA [None]
  - HEPATITIS A [None]
  - INTESTINAL OBSTRUCTION [None]
  - PANCREATITIS [None]
  - UNEVALUABLE EVENT [None]
